FAERS Safety Report 18106851 (Version 1)
Quarter: 2020Q3

REPORT INFORMATION
  Report Type: Spontaneous
  Country: AT (occurrence: AT)
  Receive Date: 20200804
  Receipt Date: 20200804
  Transmission Date: 20201103
  Serious: Yes (Other)
  Sender: FDA-Public Use
  Company Number: NVSC2020AT211988

PATIENT
  Age: 23 Year
  Sex: Female

DRUGS (1)
  1. CLAVAMOX 875 MG/125 MG ? FILMTABLETTEN [Suspect]
     Active Substance: AMOXICILLIN\CLAVULANATE POTASSIUM
     Indication: PRODUCT USED FOR UNKNOWN INDICATION
     Dosage: 1 DF, UNKNOWN
     Route: 065

REACTIONS (12)
  - Faecal calprotectin increased [Unknown]
  - Nausea [Not Recovered/Not Resolved]
  - Muscular weakness [Unknown]
  - Decreased appetite [Unknown]
  - Food intolerance [Unknown]
  - Asthenia [Unknown]
  - Insomnia [Unknown]
  - Abdominal pain [Unknown]
  - Gait disturbance [Unknown]
  - Inflammatory bowel disease [Unknown]
  - Diarrhoea [Not Recovered/Not Resolved]
  - Illness [Unknown]
